FAERS Safety Report 7312385-7 (Version None)
Quarter: 2011Q1

REPORT INFORMATION
  Report Type: 
  Country: None (occurrence: None)
  Receive Date: 20110214
  Receipt Date: 20110201
  Transmission Date: 20110831
  Serious: Yes (Hospitalization)
  Sender: FDA-Public Use
  Company Number: AUR-APL-2011-00379

PATIENT
  Age: 68 Year
  Sex: Male

DRUGS (5)
  1. TAREG [Concomitant]
  2. ASPIRIN [Concomitant]
  3. ATENOLOL [Suspect]
     Indication: HYPERTENSION
     Dosage: 25MG-DAILY-ORAL
     Route: 048
     Dates: start: 20100923, end: 20100926
  4. TORVAST [Concomitant]
  5. NORVASC [Concomitant]

REACTIONS (7)
  - FALL [None]
  - IATROGENIC INJURY [None]
  - SYNCOPE [None]
  - LOSS OF CONSCIOUSNESS [None]
  - DROP ATTACKS [None]
  - BLOOD PRESSURE DECREASED [None]
  - SINUS BRADYCARDIA [None]
